FAERS Safety Report 11080095 (Version 7)
Quarter: 2016Q2

REPORT INFORMATION
  Report Type: Report from Study
  Country: BE (occurrence: BE)
  Receive Date: 20150430
  Receipt Date: 20160427
  Transmission Date: 20160815
  Serious: Yes (Hospitalization)
  Sender: FDA-Public Use
  Company Number: BE-SA-2015SA053854

PATIENT
  Age: 32 Year
  Sex: Male
  Weight: 70 kg

DRUGS (40)
  1. ALEMTUZUMAB [Suspect]
     Active Substance: ALEMTUZUMAB
     Indication: RELAPSING-REMITTING MULTIPLE SCLEROSIS
     Route: 042
     Dates: start: 20151130, end: 20151202
  2. MEDROL [Suspect]
     Active Substance: METHYLPREDNISOLONE
     Dosage: GIVEN ON DAYS:V2 : DAY 0;
     Route: 048
     Dates: start: 20141207, end: 20141207
  3. ZOVIRAX [Suspect]
     Active Substance: ACYCLOVIR
     Dosage: V4 : DAY 2  -  PRE INFUSION AND  POST INFUSION -  ACICLOVIR OR EQUIVALENT AND
     Route: 048
     Dates: start: 20141209, end: 20141209
  4. ZOVIRAX [Suspect]
     Active Substance: ACYCLOVIR
     Dosage: V5 : DAY 3  -  PRE INFUSION AND POST INFUSION  -  ACICLOVIR OR EQUIVALENT
     Route: 048
     Dates: start: 20141210, end: 20141210
  5. ZOVIRAX [Suspect]
     Active Substance: ACYCLOVIR
     Dosage: V7 : DAY 5  -  PRE INFUSION AND POST INFUSION -  ACICLOVIR OR EQUIVALENT
     Route: 048
     Dates: start: 20141212, end: 20141212
  6. ZALDIAR [Concomitant]
     Active Substance: ACETAMINOPHEN\TRAMADOL HYDROCHLORIDE
     Indication: DRUG THERAPY
     Route: 048
     Dates: start: 20150417, end: 20150529
  7. CETIRIZINE [Suspect]
     Active Substance: CETIRIZINE HYDROCHLORIDE
     Route: 048
     Dates: start: 20141208, end: 20141208
  8. ZANTAC [Suspect]
     Active Substance: RANITIDINE HYDROCHLORIDE
     Dosage: V5 : DAY 3  -  PRE INFUSION  AND POST INFUSION-  H2 ANTAGONIST
     Route: 048
     Dates: start: 20141210, end: 20141210
  9. DAFALGAN [Suspect]
     Active Substance: ACETAMINOPHEN
     Dosage: V3 : DAY 1  -  PRE INFUSION
     Route: 048
     Dates: start: 20141208, end: 20141208
  10. ZANTAC [Suspect]
     Active Substance: RANITIDINE HYDROCHLORIDE
     Dosage: V4 : DAY 2  -  PRE INFUSION AND POST INFUSION  -  H2 ANTAGONIST AND
     Route: 048
     Dates: start: 20141209, end: 20141209
  11. ZANTAC [Suspect]
     Active Substance: RANITIDINE HYDROCHLORIDE
     Dosage: V7 : DAY 5  -  PRE INFUSION AND POST INFUSION -  H2 ANTAGONIST
     Route: 048
     Dates: start: 20141212, end: 20141212
  12. MEDROL [Suspect]
     Active Substance: METHYLPREDNISOLONE
     Dosage: V5 : DAY 3  -  PRE INFUSION
     Route: 042
     Dates: start: 20141210, end: 20141210
  13. MEDROL [Suspect]
     Active Substance: METHYLPREDNISOLONE
     Dosage: V7 : DAY 5  -  PRE INFUSION
     Route: 042
     Dates: start: 20141212, end: 20141212
  14. DAFALGAN [Suspect]
     Active Substance: ACETAMINOPHEN
     Dosage: V6 : DAY 4  -  PRE INFUSION  -  NSAID / ANTIPYRETIC
     Route: 048
     Dates: start: 20141211, end: 20141211
  15. POLARAMINE [Suspect]
     Active Substance: DEXCHLORPHENIRAMINE MALEATE
     Dosage: V5 : DAY 3  -  PRE INFUSION  -  H1 ANTAGONIST
     Route: 042
     Dates: start: 20141210, end: 20141210
  16. CETIRIZINE [Suspect]
     Active Substance: CETIRIZINE HYDROCHLORIDE
     Dosage: GIVEN ON: V2:DAY0;
     Route: 048
     Dates: start: 20141207, end: 20141207
  17. ZANTAC [Suspect]
     Active Substance: RANITIDINE HYDROCHLORIDE
     Dosage: V3 : DAY 1  -  PRE INFUSION AND V3 : DAY 1  -  POST INFUSION  -  H2 ANTAGONIST
     Route: 048
     Dates: start: 20141208, end: 20141208
  18. MEDROL [Suspect]
     Active Substance: METHYLPREDNISOLONE
     Dosage: V6 : DAY 4  -  PRE INFUSION
     Route: 042
     Dates: start: 20141211, end: 20141211
  19. ZOVIRAX [Suspect]
     Active Substance: ACYCLOVIR
     Route: 048
     Dates: start: 20141208, end: 20141208
  20. POLARAMINE [Suspect]
     Active Substance: DEXCHLORPHENIRAMINE MALEATE
     Dosage: V6 : DAY 4  -  PRE INFUSION  -  H1 ANTAGONIST
     Route: 042
     Dates: start: 20141211, end: 20141211
  21. CETIRIZINE [Suspect]
     Active Substance: CETIRIZINE HYDROCHLORIDE
     Dosage: V7 : DAY 5  -  POST INFUSION
     Route: 048
     Dates: start: 20141212, end: 20141212
  22. ZANTAC [Suspect]
     Active Substance: RANITIDINE HYDROCHLORIDE
     Route: 048
     Dates: start: 20141207, end: 20141207
  23. DAFALGAN [Suspect]
     Active Substance: ACETAMINOPHEN
     Dosage: V4 : DAY 2  -  PRE INFUSION  -  NSAID / ANTIPYRETIC AND
     Route: 048
     Dates: start: 20141209, end: 20141209
  24. DAFALGAN [Suspect]
     Active Substance: ACETAMINOPHEN
     Dosage: V5 : DAY 3  -  PRE INFUSION  -  NSAID / ANTIPYRETIC
     Route: 048
     Dates: start: 20141210, end: 20141210
  25. POLARAMINE [Suspect]
     Active Substance: DEXCHLORPHENIRAMINE MALEATE
     Route: 042
     Dates: start: 20141209, end: 20141209
  26. ALPRAZOLAM. [Concomitant]
     Active Substance: ALPRAZOLAM
     Indication: DRUG THERAPY
     Route: 048
  27. CETIRIZINE [Suspect]
     Active Substance: CETIRIZINE HYDROCHLORIDE
     Dosage: V5 : DAY 3  -  POST INFUSION  -  H1 ANTAGONIST
     Route: 048
     Dates: start: 20141210, end: 20141210
  28. CETIRIZINE [Suspect]
     Active Substance: CETIRIZINE HYDROCHLORIDE
     Dosage: V6 : DAY 4  -  POST INFUSION  -  H1 ANTAGONIST
     Route: 048
     Dates: start: 20141211, end: 20141211
  29. MEDROL [Suspect]
     Active Substance: METHYLPREDNISOLONE
     Dosage: V4 : DAY 2  -  PRE INFUSION AND
     Route: 042
     Dates: start: 20141209, end: 20141209
  30. DAFALGAN [Suspect]
     Active Substance: ACETAMINOPHEN
     Route: 048
     Dates: start: 20141212, end: 20141212
  31. ZOVIRAX [Suspect]
     Active Substance: ACYCLOVIR
     Dosage: V6 : DAY 4  -  PRE INFUSION  AND POST INFUSION-  ACICLOVIR OR EQUIVALENT
     Route: 048
     Dates: start: 20141211, end: 20141211
  32. ZANTAC [Suspect]
     Active Substance: RANITIDINE HYDROCHLORIDE
     Dosage: V6 : DAY 4  -  PRE INFUSION  AND POST INFUSION-  H2 ANTAGONIST
     Route: 048
     Dates: start: 20141211, end: 20141211
  33. ACICLOVIR [Suspect]
     Active Substance: ACYCLOVIR
     Route: 065
     Dates: start: 20141213, end: 20150106
  34. ALEMTUZUMAB [Suspect]
     Active Substance: ALEMTUZUMAB
     Indication: RELAPSING-REMITTING MULTIPLE SCLEROSIS
     Route: 042
     Dates: start: 20141208, end: 20141212
  35. CETIRIZINE [Suspect]
     Active Substance: CETIRIZINE HYDROCHLORIDE
     Dosage: V4 : DAY 2  -  POST INFUSION  -  H1 ANTAGONIST
     Route: 048
     Dates: start: 20141209, end: 20141209
  36. MEDROL [Suspect]
     Active Substance: METHYLPREDNISOLONE
     Route: 042
     Dates: start: 20141208, end: 20141208
  37. POLARAMINE [Suspect]
     Active Substance: DEXCHLORPHENIRAMINE MALEATE
     Route: 042
     Dates: start: 20141208, end: 20141208
  38. POLARAMINE [Suspect]
     Active Substance: DEXCHLORPHENIRAMINE MALEATE
     Dosage: V7 : DAY 5  -  PRE INFUSION  -  H1 ANTAGONIST
     Route: 042
     Dates: start: 20141212, end: 20141212
  39. SOLU-MEDROL [Suspect]
     Active Substance: METHYLPREDNISOLONE SODIUM SUCCINATE
  40. PAROXETINE. [Concomitant]
     Active Substance: PAROXETINE
     Indication: DRUG THERAPY
     Route: 048

REACTIONS (1)
  - Varicella zoster virus infection [Recovered/Resolved]

NARRATIVE: CASE EVENT DATE: 20150417
